FAERS Safety Report 8999795 (Version 2)
Quarter: 2013Q1

REPORT INFORMATION
  Report Type: Spontaneous
  Country: JP (occurrence: JP)
  Receive Date: 20130102
  Receipt Date: 20130108
  Transmission Date: 20140127
  Serious: Yes (Death, Other)
  Sender: FDA-Public Use
  Company Number: JP-BAYER-2011-115568

PATIENT
  Age: 6 Year
  Sex: Male
  Weight: 20 kg

DRUGS (24)
  1. NEXAVAR [Suspect]
     Indication: ACUTE MONOCYTIC LEUKAEMIA
     Dosage: 200 MG/M2, QD
     Route: 048
  2. NEXAVAR [Suspect]
     Indication: ACUTE MONOCYTIC LEUKAEMIA
     Dosage: 300 MG, QD
     Route: 048
  3. NEXAVAR [Suspect]
     Indication: ACUTE MONOCYTIC LEUKAEMIA
     Dosage: 150 MG, QOD
     Route: 048
  4. NEXAVAR [Suspect]
     Indication: ACUTE MONOCYTIC LEUKAEMIA
     Dosage: 250 MG, QOD
     Route: 048
  5. FLUDARABINE PHOSPHATE [Suspect]
     Indication: ACUTE MONOCYTIC LEUKAEMIA
     Dosage: 25 MG/M2, QD (FOR DAY 1-5)
  6. FLUDARABINE PHOSPHATE [Suspect]
     Indication: ACUTE MONOCYTIC LEUKAEMIA
     Dosage: 30 MG/M2, QD (FROM DAY 1-5)
  7. FLUDARABINE PHOSPHATE [Suspect]
     Indication: ACUTE MONOCYTIC LEUKAEMIA
     Dosage: 30 MG/M2, QID
  8. CYTARABINE [Concomitant]
     Indication: ACUTE MONOCYTIC LEUKAEMIA
     Dosage: DAILY DOSE 200 MG/M2
  9. CYTARABINE [Concomitant]
     Indication: ACUTE MONOCYTIC LEUKAEMIA
     Dosage: DAILY DOSE 2 MG/KG
  10. CYTARABINE [Concomitant]
     Indication: ACUTE MONOCYTIC LEUKAEMIA
     Dosage: DAILY DOSE 1 MG/M2
  11. CYTARABINE [Concomitant]
     Indication: ACUTE MONOCYTIC LEUKAEMIA
     Dosage: DAILY DOSE 3 MG/M2
  12. IDARUBICIN HYDROCHLORIDE [Concomitant]
     Indication: ACUTE MONOCYTIC LEUKAEMIA
     Dosage: DAILY DOSE 10 MG/M2
  13. GEMTUZUMAB OZOGAMICIN [Concomitant]
     Indication: ACUTE MONOCYTIC LEUKAEMIA
     Dosage: DAILY DOSE 3 MG/M2
  14. CYCLOPHOSPHAMIDE [Concomitant]
     Indication: BONE MARROW CONDITIONING REGIMEN
     Dosage: UNK
     Route: 042
  15. ETOPOSIDE [Concomitant]
     Indication: BONE MARROW CONDITIONING REGIMEN
     Dosage: DAILY DOSE 60 MG/KG
     Route: 042
  16. ETOPOSIDE [Concomitant]
     Indication: BONE MARROW CONDITIONING REGIMEN
     Dosage: DAILY DOSE 150 MG/KG
     Route: 042
  17. ETOPOSIDE [Concomitant]
     Indication: BONE MARROW CONDITIONING REGIMEN
     Dosage: DAILY DOSE 100 MG/KG
     Route: 042
  18. TACROLIMUS [Concomitant]
     Indication: GRAFT VERSUS HOST DISEASE
  19. MITOXANTRONE HYDROCHLORIDE [Concomitant]
     Indication: ACUTE MONOCYTIC LEUKAEMIA
     Dosage: DAILY DOSE 5 MG/M2
  20. MITOXANTRONE HYDROCHLORIDE [Concomitant]
     Indication: ACUTE MONOCYTIC LEUKAEMIA
     Dosage: DAILY DOSE 10 MG/M2
  21. G-CSF [Concomitant]
     Indication: ACUTE MONOCYTIC LEUKAEMIA
     Dosage: DAILY DOSE 10 ?G/KG
  22. METHOTREXATE [Concomitant]
     Indication: PROPHYLAXIS AGAINST GRAFT VERSUS HOST DISEASE
     Dosage: DAILY DOSE 5 MG/M2
  23. BUSULFAN [Concomitant]
     Indication: BONE MARROW CONDITIONING REGIMEN
     Dosage: DAILY DOSE .95 MG/KG
  24. MELPHALAN [Concomitant]
     Indication: BONE MARROW CONDITIONING REGIMEN
     Dosage: DAILY DOSE 90 MG/M2

REACTIONS (9)
  - Respiratory failure [Fatal]
  - Pulmonary haemorrhage [Fatal]
  - Cardiac failure acute [None]
  - Renal failure acute [None]
  - Palmar-plantar erythrodysaesthesia syndrome [Recovered/Resolved]
  - Acute graft versus host disease [Not Recovered/Not Resolved]
  - Alanine aminotransferase increased [None]
  - Aspartate aminotransferase increased [None]
  - Off label use [None]
